FAERS Safety Report 5904790-8 (Version None)
Quarter: 2008Q4

REPORT INFORMATION
  Report Type: 
  Country: None (occurrence: None)
  Receive Date: 20081001
  Receipt Date: 20080905
  Transmission Date: 20090506
  Serious: Yes (Hospitalization)
  Sender: FDA-Public Use
  Company Number: NO-MERCK-0808NOR00009

PATIENT
  Age: 67 Year
  Sex: Female

DRUGS (2)
  1. ZOCOR [Suspect]
     Indication: HYPERCHOLESTEROLAEMIA
     Route: 048
     Dates: start: 20080506, end: 20080527
  2. IRBESARTAN [Concomitant]
     Route: 048

REACTIONS (2)
  - LIPOEDEMA [None]
  - RASH PRURITIC [None]
